FAERS Safety Report 6915972-0 (Version None)
Quarter: 2010Q3

REPORT INFORMATION
  Report Type: 
  Country: None (occurrence: None)
  Receive Date: 20100809
  Receipt Date: 20100809
  Transmission Date: 20110219
  Serious: Yes (Death)
  Sender: FDA-Public Use
  Company Number: None

PATIENT
  Age: 44 Year
  Sex: Male
  Weight: 74.3899 kg

DRUGS (2)
  1. BENZTROPINE MESYLATE [Suspect]
     Indication: TREMOR
     Dosage: .5 MG TWICE DAILY PO
     Route: 048
     Dates: start: 20100217, end: 20100722
  2. FLUPHENAZINE HCL [Suspect]
     Indication: SCHIZOPHRENIA
     Dosage: 5 MG TWICE DAILY PO
     Route: 048
     Dates: start: 20100217, end: 20100722

REACTIONS (5)
  - ABDOMINAL DISTENSION [None]
  - COMPLETED SUICIDE [None]
  - CONSTIPATION [None]
  - ILEUS PARALYTIC [None]
  - WEIGHT DECREASED [None]
